FAERS Safety Report 6972615-8 (Version None)
Quarter: 2010Q3

REPORT INFORMATION
  Report Type: 
  Country: None (occurrence: None)
  Receive Date: 20100909
  Receipt Date: 20100831
  Transmission Date: 20110219
  Serious: Yes (Other)
  Sender: FDA-Public Use
  Company Number: NO-PFIZER INC-2010110098

PATIENT
  Sex: Female

DRUGS (3)
  1. AMLODIPINE BESYLATE [Suspect]
  2. ALBYL-E [Interacting]
  3. PLAVIX [Interacting]

REACTIONS (4)
  - ARTERIAL DISORDER [None]
  - DRUG INTERACTION [None]
  - GINGIVAL BLEEDING [None]
  - MYOCARDIAL INFARCTION [None]
